FAERS Safety Report 15621379 (Version 3)
Quarter: 2019Q1

REPORT INFORMATION
  Report Type: Report from Study
  Country: PL (occurrence: PL)
  Receive Date: 20181115
  Receipt Date: 20190128
  Transmission Date: 20190417
  Serious: Yes (Other)
  Sender: FDA-Public Use
  Company Number: PL-CHIESI USA, INC.-PL-2018CHI000496

PATIENT
  Age: 0 Day
  Sex: Male
  Weight: .99 kg

DRUGS (2)
  1. CUROSURF [Suspect]
     Active Substance: PORACTANT ALFA
     Indication: NEONATAL RESPIRATORY DISTRESS SYNDROME
     Dosage: 3 ML, SINGLE
     Route: 039
     Dates: start: 20180619, end: 20180619
  2. CAFFEINE CITRATE. [Concomitant]
     Active Substance: CAFFEINE CITRATE
     Indication: INFANTILE APNOEA
     Dosage: 20 MG/KG, UNK
     Dates: start: 20180619, end: 20180819

REACTIONS (3)
  - Neonatal hypoxia [Recovered/Resolved]
  - Bradycardia neonatal [Recovered/Resolved]
  - Overdose [Unknown]

NARRATIVE: CASE EVENT DATE: 20180619
